FAERS Safety Report 25196178 (Version 1)
Quarter: 2025Q2

REPORT INFORMATION
  Report Type: Spontaneous
  Country: US (occurrence: US)
  Receive Date: 20250415
  Receipt Date: 20250415
  Transmission Date: 20250717
  Serious: Yes (Other)
  Sender: SANDOZ
  Company Number: US-SANDOZ-SDZ2025US022831

PATIENT
  Sex: Female

DRUGS (7)
  1. AMIKACIN [Suspect]
     Active Substance: AMIKACIN
     Indication: Mycobacterium avium complex infection
     Route: 065
  2. BACTRIM [Suspect]
     Active Substance: SULFAMETHOXAZOLE\TRIMETHOPRIM
     Indication: Mycobacterium avium complex infection
     Route: 065
  3. CIPROFLOXACIN [Suspect]
     Active Substance: CIPROFLOXACIN
     Indication: Mycobacterium avium complex infection
     Route: 065
  4. CEFOXITIN [Suspect]
     Active Substance: CEFOXITIN SODIUM
     Indication: Mycobacterium avium complex infection
     Route: 065
  5. DOXYCYCLINE [Suspect]
     Active Substance: DOXYCYCLINE
     Indication: Mycobacterium avium complex infection
     Route: 065
  6. LINEZOLID [Suspect]
     Active Substance: LINEZOLID
     Indication: Mycobacterium avium complex infection
     Route: 065
  7. MOXIFLOXACIN [Suspect]
     Active Substance: MOXIFLOXACIN
     Indication: Mycobacterium avium complex infection
     Route: 065

REACTIONS (3)
  - Mycobacterium avium complex infection [Unknown]
  - Condition aggravated [Unknown]
  - Drug resistance [Unknown]
